FAERS Safety Report 4522994-6 (Version None)
Quarter: 2004Q4

REPORT INFORMATION
  Report Type: 
  Country: None (occurrence: None)
  Receive Date: 20041208
  Receipt Date: 20041125
  Transmission Date: 20050328
  Serious: Yes (Hospitalization)
  Sender: FDA-Public Use
  Company Number: 2004CG02407

PATIENT
  Age: 14 Year
  Sex: Male

DRUGS (3)
  1. MOPRAL [Suspect]
     Indication: OESOPHAGITIS
     Dosage: 20 MG DAILY PO
     Route: 048
     Dates: start: 20040901, end: 20041125
  2. SEGLOR [Concomitant]
  3. MOTILIUM [Concomitant]

REACTIONS (3)
  - ABNORMAL BEHAVIOUR [None]
  - AMNESIA [None]
  - HALLUCINATION, VISUAL [None]
